FAERS Safety Report 17656677 (Version 2)
Quarter: 2020Q2

REPORT INFORMATION
  Report Type: Report from Study
  Country: US (occurrence: US)
  Receive Date: 20200410
  Receipt Date: 20200527
  Transmission Date: 20200713
  Serious: No
  Sender: FDA-Public Use
  Company Number: US-ACTELION-A-NJ2020-203454

PATIENT
  Age: 81 Year
  Sex: Female
  Weight: 67.12 kg

DRUGS (7)
  1. LEVOTHYROXINE SODIUM. [Concomitant]
     Active Substance: LEVOTHYROXINE SODIUM
     Dosage: 125 MG
     Dates: start: 20191227
  2. BUMEX [Concomitant]
     Active Substance: BUMETANIDE
     Dosage: 2 MG
     Dates: start: 20191227
  3. ASPIRIN (E.C.) [Concomitant]
     Active Substance: ASPIRIN
     Dosage: UNK
     Dates: start: 20191220
  4. LATANOPROST. [Concomitant]
     Active Substance: LATANOPROST
     Dosage: UNK
     Dates: start: 20191219
  5. OPSUMIT [Suspect]
     Active Substance: MACITENTAN
     Indication: PULMONARY HYPERTENSION
     Dosage: 10 MG, QD
     Route: 048
     Dates: start: 20200324
  6. OXYGEN. [Concomitant]
     Active Substance: OXYGEN
     Dosage: UNK
     Dates: start: 20200107
  7. TADALAFIL. [Concomitant]
     Active Substance: TADALAFIL
     Dosage: 20 MG

REACTIONS (4)
  - Decreased appetite [Unknown]
  - Nail discolouration [Not Recovered/Not Resolved]
  - Tremor [Unknown]
  - Yellow skin [Not Recovered/Not Resolved]

NARRATIVE: CASE EVENT DATE: 20200402
